FAERS Safety Report 23453502 (Version 1)
Quarter: 2024Q1

REPORT INFORMATION
  Report Type: Spontaneous
  Country: PL (occurrence: PL)
  Receive Date: 20240129
  Receipt Date: 20240129
  Transmission Date: 20240409
  Serious: Yes (Death, Life-Threatening, Hospitalization)
  Sender: FDA-Public Use
  Company Number: PL-POLPHARMA-IMP6000523

PATIENT
  Age: 27 Year
  Sex: Female

DRUGS (12)
  1. VORICONAZOLE [Suspect]
     Active Substance: VORICONAZOLE
     Indication: Bronchopulmonary aspergillosis
     Dosage: 200 MG/DAY
     Route: 048
  2. VORICONAZOLE [Suspect]
     Active Substance: VORICONAZOLE
     Indication: Stenotrophomonas infection
  3. AMPHOTERICIN B [Suspect]
     Active Substance: AMPHOTERICIN B
     Indication: Bronchopulmonary aspergillosis
     Dosage: INHALED DEOXYCHOLATE FORMULATION, 50 MG/8 ML; INTRAVENOUSLY IN A LIPOSOMAL FORM, 0.05 G/DAY
     Route: 042
  4. AMPHOTERICIN B [Suspect]
     Active Substance: AMPHOTERICIN B
     Indication: Stenotrophomonas infection
  5. CEFTAZIDIME [Suspect]
     Active Substance: CEFTAZIDIME
     Indication: Bronchopulmonary aspergillosis
     Dosage: 2 G, 3 TIMES A DAY
     Route: 042
  6. CEFTAZIDIME [Suspect]
     Active Substance: CEFTAZIDIME
     Indication: Stenotrophomonas infection
  7. ENOXAPARIN [Concomitant]
     Active Substance: ENOXAPARIN
     Indication: Venous thrombosis
     Dosage: 60 MG/0.6 ML OR 40 MG/0.4 ML EVERY 12 HOURS
  8. COLISTIN [Concomitant]
     Active Substance: COLISTIN
     Indication: Cytomegalovirus infection
     Dosage: INHALED, 1 MILLION IU
     Route: 055
  9. COLISTIN [Concomitant]
     Active Substance: COLISTIN
     Indication: Klebsiella infection
     Dosage: INTRAVENOUSLY, 3 MILLION IU, 3 TIMES A DAY
     Route: 042
  10. VALGANCICLOVIR [Concomitant]
     Active Substance: VALGANCICLOVIR
     Indication: Cytomegalovirus infection
     Dosage: 900 MG ONCE OR TWICE A DAY
     Route: 048
  11. VALGANCICLOVIR [Concomitant]
     Active Substance: VALGANCICLOVIR
     Indication: Klebsiella infection
  12. HEPARIN [Concomitant]
     Active Substance: HEPARIN SODIUM
     Indication: Venous thrombosis
     Dosage: UNK

REACTIONS (1)
  - Drug ineffective [Fatal]
